FAERS Safety Report 6023175-X (Version None)
Quarter: 2008Q4

REPORT INFORMATION
  Report Type: 
  Country: None (occurrence: None)
  Receive Date: 20081230
  Receipt Date: 20081223
  Transmission Date: 20090506
  Serious: Yes (Disabling)
  Sender: FDA-Public Use
  Company Number: B0552156A

PATIENT
  Age: 48 Year
  Sex: Male
  Weight: 79 kg

DRUGS (8)
  1. ZANTAC [Suspect]
     Indication: DRUG USE FOR UNKNOWN INDICATION
     Dosage: 150MG PER DAY
     Route: 048
     Dates: start: 20080504
  2. ENALAPRIL MALEATE [Suspect]
     Indication: DRUG USE FOR UNKNOWN INDICATION
     Dosage: 5MG PER DAY
     Route: 048
     Dates: start: 20080504, end: 20080504
  3. BISOPROLOL FUMARATE [Suspect]
     Indication: DRUG USE FOR UNKNOWN INDICATION
     Dosage: 50MG PER DAY
     Route: 048
     Dates: start: 20080504
  4. HEPARIN [Suspect]
     Indication: DRUG USE FOR UNKNOWN INDICATION
     Route: 042
     Dates: start: 20080504
  5. INSULIN ACTRAPID [Suspect]
     Indication: DRUG USE FOR UNKNOWN INDICATION
     Route: 058
     Dates: start: 20080504
  6. SORTIS [Suspect]
     Indication: DRUG USE FOR UNKNOWN INDICATION
     Dosage: 40MG PER DAY
     Route: 048
     Dates: start: 20080504
  7. LEXOTANIL [Suspect]
     Indication: DRUG USE FOR UNKNOWN INDICATION
     Dosage: 1.5MG TWICE PER DAY
     Route: 048
     Dates: start: 20080504
  8. IMPORTAL [Suspect]
     Indication: DRUG USE FOR UNKNOWN INDICATION
     Dosage: 20ML PER DAY
     Route: 048
     Dates: start: 20080504

REACTIONS (2)
  - ANGIOEDEMA [None]
  - RASH [None]
